FAERS Safety Report 9531400 (Version 1)
Quarter: 2013Q3

REPORT INFORMATION
  Report Type: Spontaneous
  Country: US (occurrence: US)
  Receive Date: 20130918
  Receipt Date: 20130918
  Transmission Date: 20140515
  Serious: Yes (Life-Threatening, Hospitalization)
  Sender: FDA-Public Use
  Company Number: US-BAYER-2013-112531

PATIENT
  Age: 24 Year
  Sex: Male

DRUGS (2)
  1. MAGNEVIST [Suspect]
     Indication: CARDIAC IMAGING PROCEDURE
     Dosage: 25 ML, ONCE
     Dates: start: 20130916, end: 20130916
  2. MAGNEVIST [Suspect]
     Indication: CARDIOMYOPATHY

REACTIONS (5)
  - Pulse absent [Recovered/Resolved]
  - Throat irritation [None]
  - Nausea [None]
  - Vomiting [None]
  - Convulsion [None]
